FAERS Safety Report 8599241-1 (Version None)
Quarter: 2012Q3

REPORT INFORMATION
  Report Type: 
  Country: None (occurrence: None)
  Receive Date: 20120816
  Receipt Date: 20120411
  Transmission Date: 20120928
  Serious: No
  Sender: FDA-Public Use
  Company Number: US-AMGEN-USASP2012023129

PATIENT
  Sex: Female

DRUGS (2)
  1. VICTRELIS [Concomitant]
     Indication: HEPATITIS C
     Dosage: 800 MG, TID
  2. NEUPOGEN [Suspect]
     Indication: PRODUCT USED FOR UNKNOWN INDICATION

REACTIONS (2)
  - HEADACHE [None]
  - NAUSEA [None]
